FAERS Safety Report 6773265-9 (Version None)
Quarter: 2010Q2

REPORT INFORMATION
  Report Type: 
  Country: None (occurrence: None)
  Receive Date: 20100616
  Receipt Date: 20100609
  Transmission Date: 20101027
  Serious: Yes (Hospitalization)
  Sender: FDA-Public Use
  Company Number: FR-ABBOTT-10P-056-0631444-00

PATIENT
  Age: 65 Year
  Sex: Female

DRUGS (11)
  1. ODRIK [Suspect]
     Indication: HYPERTENSION
     Route: 048
  2. LASIX [Suspect]
     Indication: HYPERTENSION
     Route: 048
  3. BYETTA [Concomitant]
     Indication: DIABETES MELLITUS
     Dosage: 5MCG TWICE DAILY
     Route: 058
     Dates: start: 20091116, end: 20091117
  4. CACIT [Concomitant]
     Indication: DRUG USE FOR UNKNOWN INDICATION
  5. TEMERIT [Concomitant]
     Indication: DRUG USE FOR UNKNOWN INDICATION
  6. LOXEN [Concomitant]
     Indication: DRUG USE FOR UNKNOWN INDICATION
  7. CRESTOR [Concomitant]
     Indication: DRUG USE FOR UNKNOWN INDICATION
  8. PREVISCAN [Concomitant]
     Indication: DRUG USE FOR UNKNOWN INDICATION
  9. NEURONTIN [Concomitant]
     Indication: DRUG USE FOR UNKNOWN INDICATION
  10. FUMAFER [Concomitant]
     Indication: DRUG USE FOR UNKNOWN INDICATION
  11. SPECIAFOLDINE [Concomitant]
     Indication: DRUG USE FOR UNKNOWN INDICATION

REACTIONS (3)
  - DIABETES MELLITUS INADEQUATE CONTROL [None]
  - RENAL FAILURE ACUTE [None]
  - WEIGHT INCREASED [None]
